FAERS Safety Report 6971658-8 (Version None)
Quarter: 2010Q3

REPORT INFORMATION
  Report Type: 
  Country: None (occurrence: None)
  Receive Date: 20100908
  Receipt Date: 20100830
  Transmission Date: 20110219
  Serious: Yes (Other)
  Sender: FDA-Public Use
  Company Number: PHHY2010BR55599

PATIENT
  Sex: Male

DRUGS (7)
  1. DIOVAN [Suspect]
     Dosage: 80 MG, 2 TABLETS A DAY
     Route: 048
  2. DIOVAN [Suspect]
     Dosage: 80 MG, 3 TABLES A DAY
     Route: 048
  3. DIOVAN [Suspect]
     Dosage: 80 MG, 4 TABLES A DAY
     Route: 048
  4. SELOZOK [Concomitant]
  5. SOTALOL [Concomitant]
     Dosage: 160 MG
  6. MAREVAN [Concomitant]
  7. ASPIRIN [Concomitant]
     Dosage: 100 MG,

REACTIONS (7)
  - ARRHYTHMIA [None]
  - ATRIAL FLUTTER [None]
  - BLOOD PRESSURE ABNORMAL [None]
  - DRUG INEFFECTIVE [None]
  - GENERAL PHYSICAL HEALTH DETERIORATION [None]
  - HYPERTENSION [None]
  - PALPITATIONS [None]
